FAERS Safety Report 15357814 (Version 1)
Quarter: 2018Q3

REPORT INFORMATION
  Report Type: Spontaneous
  Country: US (occurrence: US)
  Receive Date: 20180906
  Receipt Date: 20180906
  Transmission Date: 20181010
  Serious: No
  Sender: FDA-Public Use
  Company Number: US-ASTRAZENECA-2018SF04339

PATIENT
  Age: 25895 Day
  Sex: Female
  Weight: 78.9 kg

DRUGS (2)
  1. BYDUREON [Suspect]
     Active Substance: EXENATIDE
     Indication: TYPE 2 DIABETES MELLITUS
     Route: 058
     Dates: start: 20180814
  2. LEVEMIR PEN [Concomitant]
     Dosage: 20 UNITS IN THE MORNING AND 20 UNITS AT NIGHT

REACTIONS (4)
  - Tremor [Unknown]
  - Injection site extravasation [Recovered/Resolved]
  - Product quality issue [Unknown]
  - Blood glucose increased [Unknown]

NARRATIVE: CASE EVENT DATE: 20180814
